FAERS Safety Report 14829240 (Version 3)
Quarter: 2018Q2

REPORT INFORMATION
  Report Type: Report from Study
  Country: US (occurrence: US)
  Receive Date: 20180430
  Receipt Date: 20180524
  Transmission Date: 20180711
  Serious: Yes (Other)
  Sender: FDA-Public Use
  Company Number: US-AMGEN-USASL2018056633

PATIENT
  Age: 53 Year
  Sex: Female
  Weight: 58.5 kg

DRUGS (12)
  1. BENADRYL [Suspect]
     Active Substance: DIPHENHYDRAMINE HYDROCHLORIDE
     Indication: URTICARIA
     Dosage: UNK
     Route: 065
     Dates: start: 201804
  2. CALCIUM [Concomitant]
     Active Substance: CALCIUM
     Dosage: 2000 MG/D, UNK
     Route: 048
  3. POLYVINYL ALCOHOL [Concomitant]
     Active Substance: POLYVINYL ALCOHOL
  4. ARAVA [Concomitant]
     Active Substance: LEFLUNOMIDE
     Indication: PRODUCT USED FOR UNKNOWN INDICATION
  5. VITAMIN D [Concomitant]
     Active Substance: CHOLECALCIFEROL
     Dosage: 200 IU, UNK
     Route: 048
  6. ENBREL [Suspect]
     Active Substance: ETANERCEPT
     Indication: RHEUMATOID ARTHRITIS
     Dosage: 50 MG, QWK
     Route: 065
     Dates: start: 20180327
  7. CLOBETASOL PROPIONATE. [Concomitant]
     Active Substance: CLOBETASOL PROPIONATE
  8. BENADRYL [Suspect]
     Active Substance: DIPHENHYDRAMINE HYDROCHLORIDE
     Indication: INJECTION SITE RASH
  9. LEFLUNOMIDE. [Concomitant]
     Active Substance: LEFLUNOMIDE
     Dosage: 20 MG, UNK
     Route: 065
  10. WARFARIN [Concomitant]
     Active Substance: WARFARIN
     Dosage: 5 MG, UNK
  11. LOVASTATIN. [Concomitant]
     Active Substance: LOVASTATIN
     Route: 048
  12. LORAZEPAM. [Concomitant]
     Active Substance: LORAZEPAM
     Dosage: 1 MG, AT BED TIME AS NEEDED

REACTIONS (12)
  - Urticaria [Recovering/Resolving]
  - Injection site rash [Recovering/Resolving]
  - Psoriatic arthropathy [Unknown]
  - Rash erythematous [Unknown]
  - Rhinorrhoea [Unknown]
  - Lymphadenopathy [Unknown]
  - Hand dermatitis [Unknown]
  - Arthritis [Unknown]
  - Nasal congestion [Not Recovered/Not Resolved]
  - Injection site reaction [Recovered/Resolved]
  - Sinus congestion [Recovered/Resolved]
  - Fatigue [Unknown]

NARRATIVE: CASE EVENT DATE: 2018
